FAERS Safety Report 17871259 (Version 1)
Quarter: 2020Q2

REPORT INFORMATION
  Report Type: Spontaneous
  Country: US (occurrence: US)
  Receive Date: 20200605
  Receipt Date: 20200605
  Transmission Date: 20200714
  Serious: Yes (Death)
  Sender: FDA-Public Use
  Company Number: None

PATIENT
  Age: 53 Year
  Sex: Female

DRUGS (21)
  1. DEXAMETHASONE. [Concomitant]
     Active Substance: DEXAMETHASONE
  2. ANUCORT-HC [Concomitant]
     Active Substance: HYDROCORTISONE ACETATE
  3. MORPHINE SUL [Concomitant]
     Active Substance: MORPHINE SULFATE
  4. MS CONTIN [Concomitant]
     Active Substance: MORPHINE SULFATE
  5. ONDANSETRON [Concomitant]
     Active Substance: ONDANSETRON
  6. POT CHLORIDE [Concomitant]
     Active Substance: POTASSIUM CHLORIDE
  7. SENNA PLUS [Concomitant]
     Active Substance: DOCUSATE SODIUM\SENNOSIDES\SENNOSIDES A AND B
  8. CIPROFLOXACIN. [Concomitant]
     Active Substance: CIPROFLOXACIN
  9. DOXYCYCL HYC [Concomitant]
  10. FLUOROURACIL. [Concomitant]
     Active Substance: FLUOROURACIL
  11. GABAPENTIN. [Concomitant]
     Active Substance: GABAPENTIN
  12. PRAMIPEXOLE. [Concomitant]
     Active Substance: PRAMIPEXOLE
  13. CYANOCOBALAM [Concomitant]
     Active Substance: CYANOCOBALAMIN
  14. CAPECITABINE 500MG TAB [Suspect]
     Active Substance: CAPECITABINE
     Indication: RECTAL CANCER
     Route: 048
     Dates: start: 20200416, end: 20200602
  15. FEROSUL [Concomitant]
     Active Substance: FERROUS SULFATE
  16. NALOXONE [Concomitant]
     Active Substance: NALOXONE
  17. EMLA [Concomitant]
     Active Substance: LIDOCAINE\PRILOCAINE
  18. MAG-TAB SR [Concomitant]
     Active Substance: MAGNESIUM LACTATE
  19. OXYCODONE [Concomitant]
     Active Substance: OXYCODONE
  20. POT CL MICRO [Concomitant]
  21. PROCHLORPER [Concomitant]

REACTIONS (1)
  - Death [None]

NARRATIVE: CASE EVENT DATE: 20200602
